FAERS Safety Report 11837220 (Version 1)
Quarter: 2015Q4

REPORT INFORMATION
  Report Type: Spontaneous
  Country: US (occurrence: US)
  Receive Date: 20151215
  Receipt Date: 20151215
  Transmission Date: 20160305
  Serious: Yes (Other)
  Sender: FDA-Public Use
  Company Number: US-PFIZER INC-2015412333

PATIENT
  Age: 57 Year
  Sex: Female
  Weight: 68.27 kg

DRUGS (1)
  1. IBRANCE [Suspect]
     Active Substance: PALBOCICLIB
     Indication: BREAST CANCER
     Dosage: 100 MG, CYCLIC (DAY 1-21 Q 28 DAYS)
     Route: 048
     Dates: start: 20151112

REACTIONS (3)
  - White blood cell count decreased [Unknown]
  - Fatigue [Unknown]
  - Neutrophil count decreased [Unknown]
